FAERS Safety Report 17420411 (Version 3)
Quarter: 2020Q2

REPORT INFORMATION
  Report Type: Spontaneous
  Country: JP (occurrence: JP)
  Receive Date: 20200214
  Receipt Date: 20200407
  Transmission Date: 20200713
  Serious: Yes (Other)
  Sender: FDA-Public Use
  Company Number: JP-GILEAD-2020-0451015

PATIENT
  Age: 11 Year
  Sex: Female

DRUGS (4)
  1. AMBRISENTAN [Suspect]
     Active Substance: AMBRISENTAN
     Indication: HAEMODYNAMIC INSTABILITY
     Dosage: UNK
     Route: 048
  2. AMBRISENTAN [Suspect]
     Active Substance: AMBRISENTAN
     Indication: PULMONARY VASCULAR DISORDER
     Dosage: 3.75 MG, QD
     Route: 048
     Dates: start: 201409
  3. TADALAFIL. [Suspect]
     Active Substance: TADALAFIL
     Indication: PRODUCT USED FOR UNKNOWN INDICATION
     Dosage: UNK
     Route: 048
  4. TADALAFIL. [Suspect]
     Active Substance: TADALAFIL
     Dosage: UNK
     Route: 048

REACTIONS (9)
  - Cardiac failure [Unknown]
  - Neovascularisation [Unknown]
  - Hypoxia [Unknown]
  - Coronary artery disease [Unknown]
  - Product use in unapproved indication [Unknown]
  - Off label use [Unknown]
  - Congenital coronary artery malformation [Unknown]
  - Product use issue [Unknown]
  - Coronary artery dilatation [Unknown]

NARRATIVE: CASE EVENT DATE: 201409
